FAERS Safety Report 24955174 (Version 1)
Quarter: 2025Q1

REPORT INFORMATION
  Report Type: Spontaneous
  Country: US (occurrence: None)
  Receive Date: 20250210
  Receipt Date: 20250210
  Transmission Date: 20250408
  Serious: Yes (Hospitalization)
  Sender: FDA-CTU
  Company Number: None

PATIENT
  Age: 34 Year
  Sex: Male
  Weight: 86.49 kg

DRUGS (4)
  1. PREGABALIN [Suspect]
     Active Substance: PREGABALIN
     Indication: Detoxification
     Dosage: FREQUENCY : DAILY;?
     Route: 048
     Dates: start: 20250128, end: 20250202
  2. FENTANYL [Suspect]
     Active Substance: FENTANYL
  3. XANAX [Suspect]
     Active Substance: ALPRAZOLAM
  4. LOFEXIDINE [Concomitant]
     Active Substance: LOFEXIDINE HYDROCHLORIDE

REACTIONS (3)
  - Suicidal ideation [None]
  - Impaired driving ability [None]
  - Drug abuse [None]

NARRATIVE: CASE EVENT DATE: 20250202
